FAERS Safety Report 19757715 (Version 1)
Quarter: 2021Q3

REPORT INFORMATION
  Report Type: Report from Study
  Country: US (occurrence: US)
  Receive Date: 20210828
  Receipt Date: 20210828
  Transmission Date: 20211014
  Serious: No
  Sender: FDA-Public Use
  Company Number: NVSC2021US194914

PATIENT
  Sex: Male

DRUGS (1)
  1. COSENTYX [Suspect]
     Active Substance: SECUKINUMAB
     Indication: PSORIASIS
     Dosage: 300 MG, QMO
     Route: 058
     Dates: start: 20210725

REACTIONS (5)
  - Skin exfoliation [Recovered/Resolved]
  - Skin fissures [Recovered/Resolved]
  - Erythema [Not Recovered/Not Resolved]
  - Dry skin [Recovered/Resolved]
  - Skin haemorrhage [Recovered/Resolved]
